FAERS Safety Report 16890989 (Version 3)
Quarter: 2019Q4

REPORT INFORMATION
  Report Type: Spontaneous
  Country: US (occurrence: US)
  Receive Date: 20191007
  Receipt Date: 20191119
  Transmission Date: 20200122
  Serious: No
  Sender: FDA-Public Use
  Company Number: US-PFIZER INC-2019430140

PATIENT
  Age: 64 Year
  Sex: Female
  Weight: 100 kg

DRUGS (5)
  1. IBRANCE [Suspect]
     Active Substance: PALBOCICLIB
     Dosage: 75 MG, 1X/DAY
     Dates: start: 201807
  2. ARIMIDEX [Concomitant]
     Active Substance: ANASTROZOLE
     Indication: BREAST CANCER FEMALE
     Dosage: UNK
     Dates: start: 201805
  3. IBRANCE [Suspect]
     Active Substance: PALBOCICLIB
     Dosage: 100 MG, CYCLIC, [DAILY FOR 21 DAYS AND THEN 7 DAYS OFF]
     Dates: start: 201806
  4. IBRANCE [Suspect]
     Active Substance: PALBOCICLIB
     Dosage: 125 MG, UNK
  5. IBRANCE [Suspect]
     Active Substance: PALBOCICLIB
     Indication: BREAST CANCER FEMALE
     Dosage: 150 MG, UNK

REACTIONS (9)
  - White blood cell count decreased [Not Recovered/Not Resolved]
  - Weight decreased [Recovered/Resolved]
  - Nasopharyngitis [Unknown]
  - Vomiting [Recovered/Resolved]
  - Dyspnoea [Unknown]
  - Epistaxis [Recovered/Resolved]
  - Feeding disorder [Recovered/Resolved]
  - Malaise [Recovered/Resolved]
  - Diarrhoea [Recovered/Resolved]

NARRATIVE: CASE EVENT DATE: 201807
